FAERS Safety Report 16021605 (Version 1)
Quarter: 2019Q1

REPORT INFORMATION
  Report Type: Spontaneous
  Country: FR (occurrence: FR)
  Receive Date: 20190301
  Receipt Date: 20190301
  Transmission Date: 20190418
  Serious: Yes (Hospitalization, Other)
  Sender: FDA-Public Use
  Company Number: FR-AUROBINDO-AUR-APL-2019-009834

PATIENT

DRUGS (5)
  1. LOVENOX [Suspect]
     Active Substance: ENOXAPARIN SODIUM
     Indication: PRODUCT USED FOR UNKNOWN INDICATION
     Dosage: 4000 INTERNATIONAL UNIT, ONCE A DAY
     Route: 058
     Dates: start: 20140822, end: 20140903
  2. EUPANTOL [Suspect]
     Active Substance: PANTOPRAZOLE SODIUM
     Indication: PRODUCT USED FOR UNKNOWN INDICATION
     Dosage: 1 PER DAY
     Route: 065
     Dates: start: 20140822, end: 20140903
  3. CEFOXITIN [Suspect]
     Active Substance: CEFOXITIN SODIUM
     Indication: LUNG DISORDER
     Dosage: 2 GRAM, ONCE A DAY
     Route: 042
     Dates: start: 20140829, end: 20140830
  4. ALPRAZOLAM. [Suspect]
     Active Substance: ALPRAZOLAM
     Indication: PRODUCT USED FOR UNKNOWN INDICATION
     Dosage: 0.5 MILLIGRAM, ONCE A DAY
     Route: 048
     Dates: start: 20140823, end: 20140903
  5. CEFOTAXIME [Suspect]
     Active Substance: CEFOTAXIME SODIUM
     Indication: LUNG DISORDER
     Dosage: 6 GRAM, ONCE A DAY
     Route: 042
     Dates: start: 20140823, end: 20140830

REACTIONS (4)
  - Hyperthermia [Unknown]
  - Rash [Recovering/Resolving]
  - Eosinophilia [Unknown]
  - Drug reaction with eosinophilia and systemic symptoms [Unknown]

NARRATIVE: CASE EVENT DATE: 20140830
